FAERS Safety Report 24558570 (Version 3)
Quarter: 2024Q4

REPORT INFORMATION
  Report Type: Spontaneous
  Country: CA (occurrence: CA)
  Receive Date: 20241029
  Receipt Date: 20241216
  Transmission Date: 20250115
  Serious: Yes (Hospitalization, Other)
  Sender: INTERCEPT PHARMACEUTICALS
  Company Number: CA-ADVANZ PHARMA-202410008710

PATIENT
  Sex: Female

DRUGS (3)
  1. OCALIVA [Suspect]
     Active Substance: OBETICHOLIC ACID
     Indication: Primary biliary cholangitis
     Dosage: 5 MG, QD (OCALIVA) (AT INITIATION)
     Route: 048
     Dates: start: 20230217
  2. OCALIVA [Suspect]
     Active Substance: OBETICHOLIC ACID
     Dosage: 10 MG, QD (OCALIVA)
     Route: 048
  3. URSODIOL [Concomitant]
     Active Substance: URSODIOL
     Dosage: 1000 MG
     Dates: start: 19970312

REACTIONS (2)
  - Hospitalisation [Unknown]
  - Hip arthroplasty [Recovering/Resolving]
